FAERS Safety Report 21863069 (Version 1)
Quarter: 2023Q1

REPORT INFORMATION
  Report Type: Spontaneous
  Country: GB (occurrence: GB)
  Receive Date: 20230115
  Receipt Date: 20230115
  Transmission Date: 20230417
  Serious: Yes (Hospitalization)
  Sender: FDA-Public Use
  Company Number: None

PATIENT
  Age: 79 Year
  Sex: Female

DRUGS (13)
  1. CANDESARTAN [Interacting]
     Active Substance: CANDESARTAN
     Dosage: 32MG OD
  2. DAPAGLIFLOZIN [Interacting]
     Active Substance: DAPAGLIFLOZIN
     Dosage: 10MG OD
  3. OMEPRAZOLE [Interacting]
     Active Substance: OMEPRAZOLE
     Dosage: 40MG BD
  4. ADIZEM [Concomitant]
     Active Substance: DILTIAZEM HYDROCHLORIDE
  5. ATENOLOL [Concomitant]
     Active Substance: ATENOLOL
  6. ATORVASTATIN [Concomitant]
     Active Substance: ATORVASTATIN
  7. GLICLAZIDE [Concomitant]
     Active Substance: GLICLAZIDE
  8. DOXAZOSIN [Concomitant]
     Active Substance: DOXAZOSIN MESYLATE
  9. FENOFIBRATE [Concomitant]
     Active Substance: FENOFIBRATE
  10. METFORMIN [Concomitant]
     Active Substance: METFORMIN HYDROCHLORIDE
  11. PHENYTOIN [Concomitant]
     Active Substance: PHENYTOIN
  12. ALOGLIPTIN BENZOATE [Concomitant]
     Active Substance: ALOGLIPTIN BENZOATE
  13. Cyanocobalaimn [Concomitant]

REACTIONS (4)
  - Hyponatraemia [Recovered/Resolved]
  - Urinary tract infection [Recovered/Resolved]
  - Drug interaction [Recovered/Resolved]
  - Acute kidney injury [Recovered/Resolved]

NARRATIVE: CASE EVENT DATE: 20220409
